FAERS Safety Report 4971406-7 (Version None)
Quarter: 2006Q2

REPORT INFORMATION
  Report Type: 
  Country: None (occurrence: None)
  Receive Date: 20060406
  Receipt Date: 20060329
  Transmission Date: 20061013
  Serious: Yes (Hospitalization)
  Sender: FDA-Public Use
  Company Number: 2001-11-0485

PATIENT
  Age: 52 Year
  Sex: Female
  Weight: 54 kg

DRUGS (6)
  1. PEG-INTRON [Suspect]
     Indication: MALIGNANT MELANOMA STAGE III
     Dosage: 300 MCG/WK* SUBCUTANEOUS; SEE IMAGE
     Route: 058
     Dates: start: 20010817, end: 20010817
  2. PEG-INTRON [Suspect]
     Indication: MALIGNANT MELANOMA STAGE III
     Dosage: 300 MCG/WK* SUBCUTANEOUS; SEE IMAGE
     Route: 058
     Dates: start: 20010831, end: 20010907
  3. PEG-INTRON [Suspect]
     Indication: MALIGNANT MELANOMA STAGE III
     Dosage: 300 MCG/WK* SUBCUTANEOUS; SEE IMAGE
     Route: 058
     Dates: start: 20010817, end: 20010928
  4. PEG-INTRON [Suspect]
     Indication: MALIGNANT MELANOMA STAGE III
     Dosage: 300 MCG/WK* SUBCUTANEOUS; SEE IMAGE
     Route: 058
     Dates: start: 20010921, end: 20010928
  5. DEXAMETHASONE [Suspect]
     Indication: ANOREXIA
     Dosage: 2 MG QD ORAL
     Route: 048
     Dates: start: 20010901, end: 20011001
  6. DIAZEPAM [Concomitant]

REACTIONS (3)
  - FATIGUE [None]
  - MOOD ALTERED [None]
  - PANIC ATTACK [None]
